FAERS Safety Report 13081385 (Version 2)
Quarter: 2017Q1

REPORT INFORMATION
  Report Type: Spontaneous
  Country: US (occurrence: US)
  Receive Date: 20170103
  Receipt Date: 20170222
  Transmission Date: 20170428
  Serious: Yes (Other)
  Sender: FDA-Public Use
  Company Number: US-PFIZER INC-2016596563

PATIENT
  Age: 70 Year
  Sex: Male

DRUGS (11)
  1. VITAMIN C [Concomitant]
     Active Substance: ASCORBIC ACID
     Dosage: 100 MG, DAILY
     Route: 048
  2. OMEPRAZOLE. [Concomitant]
     Active Substance: OMEPRAZOLE
     Dosage: 20 MG, 2X/DAY (TAKE 20 MG BY MOUTH 2 (TWO) TIMES DAILY)
     Route: 048
  3. FIBER [Concomitant]
     Active Substance: PSYLLIUM HUSK
     Dosage: 625 MG, DAILY
     Route: 048
  4. MEDROL [Concomitant]
     Active Substance: METHYLPREDNISOLONE
     Dosage: 8 MG, DAILY (TAKE 1 TABLET (8 MG TOTAL)
     Route: 048
  5. MONTELUKAST SODIUM. [Concomitant]
     Active Substance: MONTELUKAST SODIUM
     Dosage: 10 MG, 1X/DAY (10 MG BY MOUTH NIGHTLY)
     Route: 048
  6. HYDROCODONE/ACETAMINOPHEN [Concomitant]
     Active Substance: ACETAMINOPHEN\HYDROCODONE
     Indication: PAIN
     Dosage: UNK, AS NEEDED [HYDROCODONE BITARTRATE: 5 MG] / [PARACETAMOL: 325 MG
     Route: 048
  7. AVASTIN [Suspect]
     Active Substance: BEVACIZUMAB
  8. DESIPRAMINE HCL [Concomitant]
     Active Substance: DESIPRAMINE HYDROCHLORIDE
     Dosage: 100 MG, UNK
     Route: 048
     Dates: start: 20160423
  9. TORISEL [Suspect]
     Active Substance: TEMSIROLIMUS
     Indication: RENAL CANCER METASTATIC
     Dosage: 25 MG, WEEKLY
     Route: 042
     Dates: start: 201506, end: 201601
  10. PROBIOTIC [Concomitant]
     Active Substance: PROBIOTICS NOS
     Dosage: UNK UNK, DAILY
     Route: 048
  11. ASPIRIN. [Concomitant]
     Active Substance: ASPIRIN
     Dosage: 81 MG, DAILY
     Route: 048

REACTIONS (15)
  - Deafness [Not Recovered/Not Resolved]
  - Hypercholesterolaemia [Unknown]
  - Pulmonary embolism [Not Recovered/Not Resolved]
  - Immunodeficiency [Unknown]
  - Major depression [Not Recovered/Not Resolved]
  - Clostridium difficile colitis [Not Recovered/Not Resolved]
  - Second primary malignancy [Not Recovered/Not Resolved]
  - Large intestine polyp [Not Recovered/Not Resolved]
  - Diverticulum [Not Recovered/Not Resolved]
  - Haemorrhoids [Not Recovered/Not Resolved]
  - Generalised anxiety disorder [Not Recovered/Not Resolved]
  - Neoplasm progression [Not Recovered/Not Resolved]
  - Occult blood [Not Recovered/Not Resolved]
  - Cataract [Not Recovered/Not Resolved]
  - Basal cell carcinoma [Not Recovered/Not Resolved]

NARRATIVE: CASE EVENT DATE: 20150619
